FAERS Safety Report 13890984 (Version 2)
Quarter: 2017Q3

REPORT INFORMATION
  Report Type: Spontaneous
  Country: US (occurrence: US)
  Receive Date: 20170822
  Receipt Date: 20170922
  Transmission Date: 20171127
  Serious: No
  Sender: FDA-Public Use
  Company Number: GXBR2017US001773

PATIENT
  Sex: Female
  Weight: 112.93 kg

DRUGS (5)
  1. METHYLPREDNISOLONE TABLETS USP [Suspect]
     Active Substance: METHYLPREDNISOLONE
     Indication: UPPER RESPIRATORY TRACT INFECTION
     Dosage: 6 DF, QD
     Route: 048
     Dates: start: 20170521
  2. METHYLPREDNISOLONE TABLETS USP [Suspect]
     Active Substance: METHYLPREDNISOLONE
     Dosage: 5 DF, QD
     Route: 048
     Dates: start: 20170522
  3. METHYLPREDNISOLONE TABLETS USP [Suspect]
     Active Substance: METHYLPREDNISOLONE
     Dosage: 4 DF, QD
     Route: 048
     Dates: start: 20170523
  4. METHYLPREDNISOLONE TABLETS USP [Suspect]
     Active Substance: METHYLPREDNISOLONE
     Dosage: 3 DF, QD
     Route: 048
     Dates: start: 20170524
  5. AUGMENTIN [Concomitant]
     Active Substance: AMOXICILLIN\CLAVULANATE POTASSIUM
     Indication: UPPER RESPIRATORY TRACT INFECTION
     Dosage: UNK UNK, BID
     Route: 048
     Dates: start: 20170520

REACTIONS (2)
  - Product physical issue [Unknown]
  - Incorrect dose administered [Unknown]
